FAERS Safety Report 6660778-3 (Version None)
Quarter: 2010Q1

REPORT INFORMATION
  Report Type: 
  Country: None (occurrence: None)
  Receive Date: 20100331
  Receipt Date: 20100316
  Transmission Date: 20100710
  Serious: Yes (Other)
  Sender: FDA-Public Use
  Company Number: US-ROCHE-683284

PATIENT
  Sex: Female
  Weight: 77.1 kg

DRUGS (3)
  1. CAPECITABINE [Suspect]
     Indication: BREAST CANCER
     Dosage: 1000 MG AM AND PM
     Route: 048
     Dates: start: 20091204
  2. COUMADIN [Suspect]
     Indication: DRUG USE FOR UNKNOWN INDICATION
     Dosage: DOSE REDUCED
     Route: 065
  3. COUMADIN [Suspect]
     Dosage: DOSE REDUCED
     Route: 065

REACTIONS (2)
  - POST PROCEDURAL HAEMORRHAGE [None]
  - TONGUE HAEMORRHAGE [None]
